FAERS Safety Report 6247639-9 (Version None)
Quarter: 2009Q2

REPORT INFORMATION
  Report Type: 
  Country: None (occurrence: None)
  Receive Date: 20090626
  Receipt Date: 20090623
  Transmission Date: 20091009
  Serious: Yes (Death)
  Sender: FDA-Public Use
  Company Number: US-GILEAD-2009-0022735

PATIENT
  Sex: Female
  Weight: 67.192 kg

DRUGS (8)
  1. LETAIRIS [Suspect]
     Indication: PULMONARY ARTERIAL HYPERTENSION
     Route: 048
     Dates: start: 20090507
  2. PRAVASTATIN [Concomitant]
  3. ALBUTEROL [Concomitant]
  4. ADVAIR HFA [Concomitant]
  5. ALPRAZOLAM [Concomitant]
  6. PANTOPRAZOLE SODIUM [Concomitant]
  7. PREDNISONE TAB [Concomitant]
  8. ONE A DAY [Concomitant]

REACTIONS (1)
  - DEATH [None]
